FAERS Safety Report 8403173-9 (Version None)
Quarter: 2012Q2

REPORT INFORMATION
  Report Type: 
  Country: None (occurrence: None)
  Receive Date: 20120323
  Receipt Date: 20110407
  Transmission Date: 20120825
  Serious: Yes (Other)
  Sender: FDA-Public Use
  Company Number: 163-21880-11040978

PATIENT
  Age: 70 Year
  Sex: Male
  Weight: 88.5 kg

DRUGS (1)
  1. REVLIMID [Suspect]
     Indication: MULTIPLE MYELOMA
     Dosage: 20 MG, 2 IN 1 D, PO
     Route: 048
     Dates: start: 20110201

REACTIONS (1)
  - SINUSITIS [None]
